FAERS Safety Report 5705565-5 (Version None)
Quarter: 2008Q2

REPORT INFORMATION
  Report Type: 
  Country: None (occurrence: None)
  Receive Date: 20080415
  Receipt Date: 20080414
  Transmission Date: 20081010
  Serious: Yes (Other)
  Sender: FDA-Public Use
  Company Number: US-BRISTOL-MYERS SQUIBB COMPANY-14149629

PATIENT
  Age: 41 Year
  Sex: Female

DRUGS (7)
  1. CYCLOPHOSPHAMIDE [Suspect]
     Indication: BREAST CANCER
  2. PACLITAXEL [Suspect]
     Indication: BREAST CANCER
  3. OXYCODONE HCL [Suspect]
     Indication: PAIN PROPHYLAXIS
     Dosage: DOSE TAKEN AS 20MG PER DAY, 40MG PER DAY. 30 MG/DAY AND 5 MG/DAY
  4. EPIRUBICIN [Suspect]
     Indication: BREAST CANCER
  5. FLUOROURACIL [Suspect]
     Indication: BREAST CANCER
  6. TRASTUZUMAB [Suspect]
     Indication: BREAST CANCER
  7. CAPECITABINE [Suspect]
     Indication: BREAST CANCER

REACTIONS (9)
  - ABDOMINAL DISTENSION [None]
  - ABDOMINAL PAIN [None]
  - ASCITES [None]
  - INFUSION RELATED REACTION [None]
  - JAUNDICE [None]
  - LIVER DISORDER [None]
  - PAIN [None]
  - PYREXIA [None]
  - RASH [None]
